FAERS Safety Report 11929872 (Version 2)
Quarter: 2016Q1

REPORT INFORMATION
  Report Type: Spontaneous
  Country: CH (occurrence: CH)
  Receive Date: 20160120
  Receipt Date: 20160127
  Transmission Date: 20160526
  Serious: Yes (Other)
  Sender: FDA-Public Use
  Company Number: CH-GE HEALTHCARE MEDICAL DIAGNOSTICS-OSCN-PR-1601L-0004

PATIENT
  Age: 52 Year
  Sex: Female

DRUGS (9)
  1. GADOTERIDOL [Suspect]
     Active Substance: GADOTERIDOL
     Indication: RENAL TRANSPLANT FAILURE
     Route: 065
     Dates: start: 200108, end: 200108
  2. GADOTERIDOL [Suspect]
     Active Substance: GADOTERIDOL
     Indication: DIAGNOSTIC PROCEDURE
     Route: 065
     Dates: start: 200205, end: 200205
  3. GADOPENTETATE DIMEGLUMINE. [Suspect]
     Active Substance: GADOPENTETATE DIMEGLUMINE
     Indication: RENAL TRANSPLANT FAILURE
     Route: 065
     Dates: start: 200112, end: 200112
  4. OMNISCAN [Suspect]
     Active Substance: GADODIAMIDE
     Indication: DIAGNOSTIC PROCEDURE
     Route: 065
     Dates: start: 200105, end: 200105
  5. OMNISCAN [Suspect]
     Active Substance: GADODIAMIDE
     Indication: RENAL TRANSPLANT FAILURE
     Route: 065
     Dates: start: 199608, end: 199608
  6. GADOTERIDOL [Suspect]
     Active Substance: GADOTERIDOL
     Route: 065
     Dates: start: 200504, end: 200504
  7. GADOPENTETATE DIMEGLUMINE. [Suspect]
     Active Substance: GADOPENTETATE DIMEGLUMINE
     Indication: DIAGNOSTIC PROCEDURE
     Route: 065
     Dates: start: 200208, end: 200208
  8. GADOBUTROL [Suspect]
     Active Substance: GADOBUTROL
     Indication: RENAL TRANSPLANT FAILURE
     Route: 065
     Dates: start: 200512, end: 200512
  9. GADOBUTROL [Suspect]
     Active Substance: GADOBUTROL
     Indication: DIAGNOSTIC PROCEDURE

REACTIONS (5)
  - Nuclear magnetic resonance imaging brain abnormal [Unknown]
  - Altered state of consciousness [Unknown]
  - Nephrogenic systemic fibrosis [Unknown]
  - Confusional state [Unknown]
  - Neurological symptom [Unknown]
